FAERS Safety Report 6068131-0 (Version None)
Quarter: 2009Q1

REPORT INFORMATION
  Report Type: 
  Country: None (occurrence: None)
  Receive Date: 20090206
  Receipt Date: 20090127
  Transmission Date: 20090719
  Serious: Yes (Hospitalization)
  Sender: FDA-Public Use
  Company Number: DE-ABBOTT-09P-062-0500052-00

PATIENT
  Sex: Male

DRUGS (9)
  1. HUMIRA [Suspect]
     Indication: DRUG USE FOR UNKNOWN INDICATION
     Dates: start: 20070301, end: 20070301
  2. HUMIRA [Suspect]
     Dates: start: 20040301, end: 20040601
  3. HUMIRA [Suspect]
     Dates: start: 20070701, end: 20071001
  4. METHOTREXATE [Suspect]
     Indication: DRUG USE FOR UNKNOWN INDICATION
  5. METHOTREXATE [Suspect]
     Dates: start: 20070101
  6. INFLIXIMAB [Suspect]
     Indication: DRUG USE FOR UNKNOWN INDICATION
  7. LEFLUNOMIDE [Concomitant]
     Indication: DRUG USE FOR UNKNOWN INDICATION
  8. LEFLUNOMIDE [Concomitant]
  9. ETANERCEPT [Concomitant]
     Indication: DRUG USE FOR UNKNOWN INDICATION
     Dates: start: 20020301, end: 20020401

REACTIONS (1)
  - CEREBRAL INFARCTION [None]
